FAERS Safety Report 20569828 (Version 1)
Quarter: 2022Q1

REPORT INFORMATION
  Report Type: Spontaneous
  Country: US (occurrence: US)
  Receive Date: 20220309
  Receipt Date: 20220309
  Transmission Date: 20220424
  Serious: No
  Sender: FDA-Public Use
  Company Number: US-ELI_LILLY_AND_COMPANY-US202203003726

PATIENT
  Sex: Female

DRUGS (1)
  1. EMGALITY [Suspect]
     Active Substance: GALCANEZUMAB-GNLM
     Indication: Migraine
     Dosage: 120 MG, SINGLE (1ST LOADING DOSE)
     Route: 065
     Dates: start: 20220131

REACTIONS (5)
  - Headache [Unknown]
  - Confusional state [Unknown]
  - Dysgeusia [Unknown]
  - Underdose [Unknown]
  - Drug ineffective [Unknown]
